FAERS Safety Report 5674849-1 (Version None)
Quarter: 2008Q2

REPORT INFORMATION
  Report Type: 
  Country: None (occurrence: None)
  Receive Date: 20080307
  Receipt Date: 20070123
  Transmission Date: 20081010
  Serious: No
  Sender: FDA-Public Use
  Company Number: 07H-163-0311846-00

PATIENT
  Age: 31 Year
  Sex: Female

DRUGS (2)
  1. FENTANYL CITRATE [Suspect]
     Indication: LABOUR PAIN
     Dosage: 26 MCG, ONCE, EPIDURAL; 24 MCG/HR, CONTINUOUS INFUSION, EPIDURAL
     Route: 008
     Dates: start: 20070122, end: 20070122
  2. FENTANYL CITRATE [Suspect]
     Indication: LABOUR PAIN
     Dosage: 26 MCG, ONCE, EPIDURAL; 24 MCG/HR, CONTINUOUS INFUSION, EPIDURAL
     Route: 008
     Dates: start: 20070122, end: 20070122

REACTIONS (2)
  - FEELING DRUNK [None]
  - RESPIRATORY DEPRESSION [None]
